FAERS Safety Report 13622167 (Version 1)
Quarter: 2017Q2

REPORT INFORMATION
  Report Type: Spontaneous
  Country: US (occurrence: US)
  Receive Date: 20170607
  Receipt Date: 20170607
  Transmission Date: 20170830
  Serious: No
  Sender: FDA-Public Use
  Company Number: US-ROCHE-626786

PATIENT
  Sex: Female

DRUGS (1)
  1. FUZEON [Suspect]
     Active Substance: ENFUVIRTIDE
     Indication: PRODUCT USED FOR UNKNOWN INDICATION
     Dosage: DOSEFORM: HINGED CAP NEEDLES, POTENCY: 90 MG/VIAL
     Route: 065

REACTIONS (2)
  - Injury associated with device [Unknown]
  - No adverse event [Unknown]
